FAERS Safety Report 6670284-8 (Version None)
Quarter: 2010Q2

REPORT INFORMATION
  Report Type: 
  Country: None (occurrence: None)
  Receive Date: 20100405
  Receipt Date: 20100317
  Transmission Date: 20101027
  Serious: Yes (Death)
  Sender: FDA-Public Use
  Company Number: 1-21958112

PATIENT
  Age: 86 Year
  Sex: Male
  Weight: 54.8852 kg

DRUGS (3)
  1. CITALOPRAM HYDROBROMIDE [Suspect]
  2. DIESEL FUEL NO. 2 [Suspect]
     Indication: COMPLETED SUICIDE
     Dosage: ORAL
     Route: 048
  3. ALPRAZOLAM [Concomitant]

REACTIONS (11)
  - AORTIC ARTERIOSCLEROSIS [None]
  - AORTIC DILATATION [None]
  - ARTERIOSCLEROSIS [None]
  - ASPHYXIA [None]
  - COMPLETED SUICIDE [None]
  - ECCHYMOSIS [None]
  - EXPOSURE TO TOXIC AGENT [None]
  - HEPATIC CONGESTION [None]
  - PULMONARY OEDEMA [None]
  - RENAL CYST [None]
  - RENAL DISORDER [None]
